FAERS Safety Report 6436461-6 (Version None)
Quarter: 2009Q4

REPORT INFORMATION
  Report Type: 
  Country: None (occurrence: None)
  Receive Date: 20091110
  Receipt Date: 20091110
  Transmission Date: 20100525
  Serious: Yes (Hospitalization)
  Sender: FDA-Public Use
  Company Number: None

PATIENT
  Age: 59 Year
  Sex: Male
  Weight: 69 kg

DRUGS (3)
  1. BEVACIZUMAB 10MG/KG GENENTECH [Suspect]
     Indication: PANCREATIC CARCINOMA METASTATIC
     Dosage: 720 MG Q2WKS IV
     Route: 042
     Dates: start: 20081030, end: 20091001
  2. DOCETAXEL [Concomitant]
  3. GEMCITABINE [Concomitant]

REACTIONS (4)
  - CHOLECYSTITIS [None]
  - DEVICE MALFUNCTION [None]
  - PLEURAL EFFUSION [None]
  - PNEUMONIA [None]
